FAERS Safety Report 9341529 (Version 3)
Quarter: 2014Q2

REPORT INFORMATION
  Report Type: Spontaneous
  Country: US (occurrence: US)
  Receive Date: 20130611
  Receipt Date: 20140416
  Transmission Date: 20141212
  Serious: Yes (Life-Threatening)
  Sender: FDA-Public Use
  Company Number: US-SANOFI-AVENTIS-2013SA057776

PATIENT
  Age: 58 Year
  Sex: Male

DRUGS (2)
  1. APIDRA SOLOSTAR [Suspect]
     Indication: PRODUCT USED FOR UNKNOWN INDICATION
     Dosage: THERAPY START DATE - 2 MONTHS AGO?FREQUENCY - BEFORE EATING. DOSE:18 UNIT(S)
     Route: 058
  2. SOLOSTAR [Concomitant]
     Dosage: THERAPY START DATE - 2 MONTHS AGO

REACTIONS (19)
  - Paralysis [Unknown]
  - Paraesthesia [Unknown]
  - Abasia [Unknown]
  - Mobility decreased [Unknown]
  - Asthenia [Unknown]
  - Dysphagia [Unknown]
  - Nervous system disorder [Unknown]
  - Tongue disorder [Unknown]
  - Constipation [Unknown]
  - Dyspnoea [Unknown]
  - Chest discomfort [Unknown]
  - Palpitations [Unknown]
  - Abnormal behaviour [Unknown]
  - Weight decreased [Unknown]
  - Feeling abnormal [Unknown]
  - Rash [Unknown]
  - Pruritus [Unknown]
  - Visual impairment [Unknown]
  - Underdose [Unknown]
